FAERS Safety Report 4330577-6 (Version None)
Quarter: 2004Q1

REPORT INFORMATION
  Report Type: 
  Country: None (occurrence: None)
  Receive Date: 20040329
  Receipt Date: 20040316
  Transmission Date: 20041129
  Serious: Yes (Hospitalization, Other)
  Sender: FDA-Public Use
  Company Number: 2003191456US

PATIENT
  Age: 50 Year
  Sex: Female
  Weight: 91.3 kg

DRUGS (4)
  1. CELEBREX [Suspect]
     Indication: CERVIX CARCINOMA
     Dosage: 800 MG, QD, ORAL
     Route: 048
     Dates: start: 20031124, end: 20031208
  2. FLUOROURACIL [Suspect]
     Indication: CERVIX CARCINOMA
     Dosage: 1000
     Dates: start: 20031125, end: 20031129
  3. CISPLATIN [Suspect]
     Indication: CERVIX CARCINOMA
     Dosage: 75 MG/M2
     Dates: start: 20031124, end: 20031128
  4. RADIATION [Suspect]

REACTIONS (4)
  - ARTERIOSPASM CORONARY [None]
  - PNEUMONIA [None]
  - RASH ERYTHEMATOUS [None]
  - RASH MACULO-PAPULAR [None]
